FAERS Safety Report 19776319 (Version 4)
Quarter: 2021Q4

REPORT INFORMATION
  Report Type: Spontaneous
  Country: NL (occurrence: NL)
  Receive Date: 20210901
  Receipt Date: 20211210
  Transmission Date: 20220304
  Serious: Yes (Other)
  Sender: FDA-Public Use
  Company Number: NL-TEVA-2021-NL-1942067

PATIENT
  Age: 57 Year
  Sex: Female
  Weight: 77 kg

DRUGS (9)
  1. DEXAMETHASONE [Suspect]
     Active Substance: DEXAMETHASONE
     Indication: Haemophagocytic lymphohistiocytosis
     Route: 040
  2. DEXAMETHASONE [Suspect]
     Active Substance: DEXAMETHASONE
     Indication: Haemophagocytic lymphohistiocytosis
     Route: 065
     Dates: end: 202004
  3. DEXAMETHASONE [Suspect]
     Active Substance: DEXAMETHASONE
     Dosage: GRADUAL REDUCTION OF DEXAMETHASONE
     Route: 065
     Dates: start: 202004
  4. IPILIMUMAB [Concomitant]
     Active Substance: IPILIMUMAB
     Indication: Metastatic malignant melanoma
     Dosage: THREE CYCLES
     Dates: start: 202002, end: 202003
  5. NIVOLUMAB [Concomitant]
     Active Substance: NIVOLUMAB
     Indication: Metastatic malignant melanoma
     Dates: start: 202002, end: 202003
  6. PREDNISONE [Concomitant]
     Active Substance: PREDNISONE
     Indication: Liver disorder
  7. PREDNISONE [Concomitant]
     Active Substance: PREDNISONE
     Dosage: TAPERED DOWN
  8. PREDNISONE [Concomitant]
     Active Substance: PREDNISONE
     Dosage: RESTARTED
  9. COTRIMOXAZOLE [Concomitant]
     Active Substance: SULFAMETHOXAZOLE\TRIMETHOPRIM
     Indication: Antifungal prophylaxis

REACTIONS (3)
  - Bone infarction [Not Recovered/Not Resolved]
  - Mood swings [Recovered/Resolved]
  - Weight increased [Recovered/Resolved]

NARRATIVE: CASE EVENT DATE: 20200430
